FAERS Safety Report 21904894 (Version 1)
Quarter: 2023Q1

REPORT INFORMATION
  Report Type: Spontaneous
  Country: AT (occurrence: AT)
  Receive Date: 20230124
  Receipt Date: 20230124
  Transmission Date: 20230418
  Serious: Yes (Other)
  Sender: FDA-Public Use
  Company Number: ALC2023AT000585

PATIENT

DRUGS (1)
  1. FLUORESCEIN SODIUM [Suspect]
     Active Substance: FLUORESCEIN SODIUM
     Indication: Arterial occlusive disease
     Dosage: ACCORDING TO THE SUMMARY OF PRODUCT CHARACTERISTICS
     Route: 065
     Dates: start: 20221130, end: 20221130

REACTIONS (5)
  - Type I hypersensitivity [Unknown]
  - Hypertension [Unknown]
  - Cardiovascular disorder [Unknown]
  - Pruritus [Unknown]
  - Respiratory distress [Unknown]

NARRATIVE: CASE EVENT DATE: 20221130
